FAERS Safety Report 15152456 (Version 1)
Quarter: 2018Q3

REPORT INFORMATION
  Report Type: Report from Study
  Country: US (occurrence: US)
  Receive Date: 20180717
  Receipt Date: 20180717
  Transmission Date: 20181010
  Serious: No
  Sender: FDA-Public Use
  Company Number: US-AMGEN-USASL2018095390

PATIENT
  Age: 37 Year
  Sex: Female

DRUGS (2)
  1. ENBREL [Suspect]
     Active Substance: ETANERCEPT
     Indication: PSORIATIC ARTHROPATHY
     Dosage: 50 MG, QWK
     Route: 065
     Dates: start: 20180625
  2. MTX [Concomitant]
     Active Substance: METHOTREXATE SODIUM
     Dosage: UNK

REACTIONS (5)
  - Hypertension [Unknown]
  - Arthroscopy [Unknown]
  - White blood cells urine positive [Unknown]
  - Hepatic enzyme abnormal [Unknown]
  - Malaise [Unknown]

NARRATIVE: CASE EVENT DATE: 20180703
